FAERS Safety Report 4990757-3 (Version None)
Quarter: 2006Q2

REPORT INFORMATION
  Report Type: 
  Country: None (occurrence: None)
  Receive Date: 20060428
  Receipt Date: 20060323
  Transmission Date: 20061013
  Serious: Yes (Death, Life-Threatening, Hospitalization)
  Sender: FDA-Public Use
  Company Number: DE200603005283

PATIENT
  Age: 33 Year
  Sex: Female

DRUGS (6)
  1. ZYPREXA [Suspect]
     Indication: SCHIZOID PERSONALITY DISORDER
     Dosage: SEE IMAGE
     Route: 048
     Dates: start: 20040704, end: 20040704
  2. ZYPREXA [Suspect]
     Indication: SCHIZOID PERSONALITY DISORDER
     Dosage: SEE IMAGE
     Route: 048
     Dates: start: 20040705, end: 20040705
  3. ZYPREXA [Suspect]
     Indication: SCHIZOID PERSONALITY DISORDER
     Dosage: SEE IMAGE
     Route: 030
     Dates: start: 20040703, end: 20040703
  4. ZYPREXA [Suspect]
     Indication: SCHIZOID PERSONALITY DISORDER
     Dosage: SEE IMAGE
     Route: 030
     Dates: start: 20040707, end: 20040708
  5. ZYPREXA [Suspect]
     Indication: SCHIZOID PERSONALITY DISORDER
     Dosage: SEE IMAGE
     Route: 030
     Dates: start: 20040709, end: 20040709
  6. LORAZEPAM [Concomitant]

REACTIONS (8)
  - BODY TEMPERATURE INCREASED [None]
  - CARDIAC ARREST [None]
  - CARDIAC PACEMAKER MALFUNCTION [None]
  - CATATONIA [None]
  - DEVICE FAILURE [None]
  - REFUSAL OF TREATMENT BY PATIENT [None]
  - RHABDOMYOLYSIS [None]
  - STUPOR [None]
